FAERS Safety Report 4503913-5 (Version None)
Quarter: 2004Q4

REPORT INFORMATION
  Report Type: 
  Country: None (occurrence: None)
  Receive Date: 20041115
  Receipt Date: 20041101
  Transmission Date: 20050328
  Serious: Yes (Hospitalization)
  Sender: FDA-Public Use
  Company Number: 163-20785-04110037

PATIENT
  Age: 77 Year
  Sex: Male

DRUGS (1)
  1. THALOMID [Suspect]
     Dosage: DAILY, ORAL
     Route: 048

REACTIONS (7)
  - DYSPNOEA [None]
  - DYSURIA [None]
  - FLATULENCE [None]
  - NERVOUSNESS [None]
  - PYREXIA [None]
  - RASH GENERALISED [None]
  - TREMOR [None]
